FAERS Safety Report 16528960 (Version 2)
Quarter: 2019Q3

REPORT INFORMATION
  Report Type: Spontaneous
  Country: BR (occurrence: BR)
  Receive Date: 20190703
  Receipt Date: 20190923
  Transmission Date: 20191004
  Serious: Yes (Hospitalization, Other)
  Sender: FDA-Public Use
  Company Number: BR-B.I. PHARMACEUTICALS,INC./RIDGEFIELD-2019-MI-000566

PATIENT
  Age: 60 Year
  Sex: Female

DRUGS (7)
  1. TRAMAL [Concomitant]
     Active Substance: TRAMADOL
     Indication: PAIN
     Dosage: TRAMAL 70MG; 2 CAPSULES EVERY 8 HOURS
     Route: 048
  2. OMEPRAZOL [Concomitant]
     Active Substance: OMEPRAZOLE
     Indication: PROPHYLAXIS
     Dosage: OMEPRAZOL 20 MG; 1 CAPSULE ONCE DAILY
     Route: 048
  3. LEVOTIROXINA [Concomitant]
     Active Substance: LEVOTHYROXINE
     Indication: HYPOTHYROIDISM
     Dosage: LEVOTIROXINA 125MG ONCE DAILY
     Route: 048
  4. MICARDIS [Suspect]
     Active Substance: TELMISARTAN
     Indication: HYPERTENSION
     Dosage: MICARDIS 80 MG 1 TABLET ONCE DAILY
     Route: 048
     Dates: start: 20180713
  5. MICARDIS HCT [Suspect]
     Active Substance: HYDROCHLOROTHIAZIDE\TELMISARTAN
     Indication: HYPERTENSION
     Dosage: MICARDIS HCT 80/12,5 MG 1 TABLET ONCE DAILY
     Route: 048
     Dates: end: 20180713
  6. PREGABALINA [Concomitant]
     Active Substance: PREGABALIN
     Indication: PAIN
     Dosage: PREGABALINA 75MG 2 CAPSULES EVERY 8 HOURS
     Route: 048
  7. CLORIDRATO DE FLUOXETINA [Concomitant]
     Indication: SEDATIVE THERAPY
     Dosage: CLORIDRATO DE FLUOXETINA 1 CAPSULE ONCE DAILY
     Route: 065

REACTIONS (6)
  - Blood pressure increased [Not Recovered/Not Resolved]
  - Gait disturbance [Not Recovered/Not Resolved]
  - Rib fracture [Not Recovered/Not Resolved]
  - Spinal cord neoplasm [Recovered/Resolved]
  - Infarction [Recovered/Resolved with Sequelae]
  - Paraplegia [Not Recovered/Not Resolved]

NARRATIVE: CASE EVENT DATE: 201807
